FAERS Safety Report 9411659 (Version 1)
Quarter: 2013Q3

REPORT INFORMATION
  Report Type: Spontaneous
  Country: US (occurrence: US)
  Receive Date: 20130722
  Receipt Date: 20130722
  Transmission Date: 20140515
  Serious: Yes (Hospitalization, Other)
  Sender: FDA-Public Use
  Company Number: US-SANOFI-AVENTIS-2013SA072456

PATIENT
  Age: 77 Year
  Sex: Female

DRUGS (1)
  1. LANTUS [Suspect]
     Indication: TYPE 2 DIABETES MELLITUS
     Dosage: TAKEN FROM - 3 YEARS AGO DOSE:40 UNIT(S)
     Route: 058

REACTIONS (8)
  - Urinary tract infection fungal [Unknown]
  - Pyrexia [Unknown]
  - Heart rate increased [Unknown]
  - Malaise [Unknown]
  - Oropharyngeal pain [Unknown]
  - Dysphonia [Unknown]
  - Vomiting [Unknown]
  - Blood glucose increased [Recovering/Resolving]
